FAERS Safety Report 8951057 (Version 1)
Quarter: 2012Q4

REPORT INFORMATION
  Report Type: 
  Country: US (occurrence: US)
  Receive Date: 20121207
  Receipt Date: 20121207
  Transmission Date: 20130627
  Serious: Yes (Other)
  Sender: FDA-Public Use
  Company Number: US-COVIDIEN/TYCO HEALTHCARE/MALLINCKRODT-T201204227

PATIENT
  Sex: Female

DRUGS (2)
  1. TEMAZEPAM [Suspect]
     Indication: SLEEP DISORDER
     Dosage: 15 mg
     Dates: start: 201207
  2. METOPROLOL [Concomitant]
     Indication: HYPERTENSION
     Dosage: UNK

REACTIONS (1)
  - Blood pressure decreased [Unknown]
